FAERS Safety Report 18676475 (Version 1)
Quarter: 2020Q4

REPORT INFORMATION
  Report Type: Spontaneous
  Country: JP (occurrence: JP)
  Receive Date: 20201229
  Receipt Date: 20201229
  Transmission Date: 20210114
  Serious: Yes (Hospitalization)
  Sender: FDA-Public Use
  Company Number: JP-JNJFOC-20201246565

PATIENT
  Age: 42 Year
  Sex: Male
  Weight: 75 kg

DRUGS (3)
  1. IBUPROFEN. [Concomitant]
     Active Substance: IBUPROFEN
     Route: 065
  2. PREGABALIN. [Concomitant]
     Active Substance: PREGABALIN
     Route: 048
  3. TRAMCET [Suspect]
     Active Substance: ACETAMINOPHEN\TRAMADOL
     Indication: PRODUCT USED FOR UNKNOWN INDICATION
     Route: 048

REACTIONS (3)
  - Suicide attempt [Unknown]
  - Overdose [Unknown]
  - Cardiomyopathy [Recovering/Resolving]
